FAERS Safety Report 9581971 (Version 3)
Quarter: 2014Q3

REPORT INFORMATION
  Report Type: Spontaneous
  Country: JP (occurrence: JP)
  Receive Date: 20131002
  Receipt Date: 20140703
  Transmission Date: 20150326
  Serious: Yes (Disabling, Other)
  Sender: FDA-Public Use
  Company Number: PHHY2013JP105062

PATIENT
  Age: 72 Year
  Sex: Male
  Weight: 60 kg

DRUGS (5)
  1. GLIVEC [Suspect]
     Active Substance: IMATINIB MESYLATE
     Dosage: 300 MG, DAILY
     Route: 048
     Dates: start: 20110906, end: 20111006
  2. LASIX [Concomitant]
     Active Substance: FUROSEMIDE
     Indication: PROPHYLAXIS
     Dosage: 20 MG, UNK
     Route: 048
  3. GLIVEC [Suspect]
     Active Substance: IMATINIB MESYLATE
     Dosage: 200 MG, DAILY
     Route: 048
     Dates: start: 20111007
  4. MUCOSTA [Concomitant]
     Active Substance: REBAMIPIDE
     Indication: GASTRITIS PROPHYLAXIS
     Dosage: 300 MG, UNK
     Route: 048
  5. GLIVEC [Suspect]
     Active Substance: IMATINIB MESYLATE
     Indication: GASTROINTESTINAL STROMAL TUMOUR
     Dosage: 300 MG, DAILY
     Route: 048
     Dates: start: 20100209, end: 20100928

REACTIONS (9)
  - Toxic skin eruption [Recovering/Resolving]
  - Decubitus ulcer [Unknown]
  - Rash [Recovered/Resolved with Sequelae]
  - Pain [Unknown]
  - Pneumonia aspiration [Unknown]
  - Wound [Recovered/Resolved]
  - Eczema [Not Recovered/Not Resolved]
  - Dementia [Unknown]
  - Pigmentation disorder [Not Recovered/Not Resolved]

NARRATIVE: CASE EVENT DATE: 20100702
